FAERS Safety Report 7346218-X (Version None)
Quarter: 2011Q1

REPORT INFORMATION
  Report Type: 
  Country: None (occurrence: None)
  Receive Date: 20110311
  Receipt Date: 20110307
  Transmission Date: 20110831
  Serious: No
  Sender: FDA-Public Use
  Company Number: US-PFIZER INC-US-WYE-H12088309

PATIENT
  Sex: Male
  Weight: 99.8 kg

DRUGS (3)
  1. LITHIUM [Suspect]
     Dosage: UNK
  2. PRISTIQ [Suspect]
     Indication: DEPRESSION
     Dosage: 50 MG, 1X/DAY
     Route: 048
     Dates: start: 20091103
  3. ABILIFY [Concomitant]

REACTIONS (1)
  - SOMNOLENCE [None]
